FAERS Safety Report 23511022 (Version 1)
Quarter: 2024Q1

REPORT INFORMATION
  Report Type: Spontaneous
  Country: CN (occurrence: CN)
  Receive Date: 20240212
  Receipt Date: 20240212
  Transmission Date: 20240410
  Serious: Yes (Hospitalization, Other)
  Sender: FDA-Public Use
  Company Number: CN-SA-SAC20240208000206

PATIENT
  Age: 85 Year
  Sex: Female
  Weight: 44 kg

DRUGS (8)
  1. CLOPIDOGREL BISULFATE [Suspect]
     Active Substance: CLOPIDOGREL BISULFATE
     Indication: Cerebrovascular disorder
     Dosage: 75 MG, QD
     Route: 048
     Dates: start: 20230127, end: 20240125
  2. YUNNAN BAIYAO [Concomitant]
     Dosage: 0.5 G QID PO
     Route: 048
  3. INDOBUFEN [Concomitant]
     Active Substance: INDOBUFEN
     Indication: Cerebrovascular disorder
     Dosage: DOSE 0.100000 DOSE UNIT G NUMBER OF USE 1 DAY NUMBER OF USE 1
     Route: 048
     Dates: start: 20240101, end: 20240125
  4. PANTOPRAZOLE [Concomitant]
     Active Substance: PANTOPRAZOLE
     Dosage: UNK
  5. SOMATOSTATIN [Concomitant]
     Active Substance: SOMATOSTATIN
  6. SODIUM CHLORIDE [Concomitant]
     Active Substance: SODIUM CHLORIDE
     Dosage: SODIUM CHLORIDE INJECTION 36 ML + SOMATOSTATIN CHLORIDE INJECTION 40 ML + PANTOPRAZOLE
  7. KANG FU XIN [Concomitant]
     Dosage: 10 ML TID
     Route: 048
  8. REBAMIPIDE [Concomitant]
     Active Substance: REBAMIPIDE
     Dosage: 0.1 G, TID
     Route: 048

REACTIONS (8)
  - Blood loss anaemia [Recovering/Resolving]
  - Upper gastrointestinal haemorrhage [Recovering/Resolving]
  - Melaena [Recovered/Resolved]
  - Haematemesis [Recovered/Resolved]
  - Amaurosis [Recovered/Resolved]
  - Syncope [Recovered/Resolved]
  - Palpitations [Recovered/Resolved]
  - Dizziness [Recovered/Resolved]

NARRATIVE: CASE EVENT DATE: 20240122
